FAERS Safety Report 17439676 (Version 1)
Quarter: 2020Q1

REPORT INFORMATION
  Report Type: Spontaneous
  Country: CN (occurrence: CN)
  Receive Date: 20200220
  Receipt Date: 20200220
  Transmission Date: 20200409
  Serious: Yes (Hospitalization, Other)
  Sender: FDA-Public Use
  Company Number: CN-APOTEX-2020AP007963

PATIENT
  Sex: Female

DRUGS (5)
  1. DIAZEPAM. [Suspect]
     Active Substance: DIAZEPAM
     Indication: PRODUCT USED FOR UNKNOWN INDICATION
     Dosage: UNK
     Route: 065
  2. SEROXAT [Suspect]
     Active Substance: PAROXETINE HYDROCHLORIDE
     Dosage: 2 DF, QD, TABLET
     Route: 048
     Dates: start: 1999
  3. PAROXETINE. [Suspect]
     Active Substance: PAROXETINE
     Indication: PRODUCT USED FOR UNKNOWN INDICATION
     Dosage: UNK
     Route: 065
  4. SEROXAT [Suspect]
     Active Substance: PAROXETINE HYDROCHLORIDE
     Indication: DEPRESSION
     Dosage: 2 DF, QD, TABLET
     Route: 048
     Dates: start: 1999
  5. SEROXAT CR [Suspect]
     Active Substance: PAROXETINE HYDROCHLORIDE
     Indication: DEPRESSION
     Dosage: 2 DF, QD, TABLET
     Route: 048

REACTIONS (17)
  - Pulmonary mass [Recovering/Resolving]
  - Pain in extremity [Unknown]
  - Pulmonary fibrosis [Unknown]
  - Treatment noncompliance [Recovered/Resolved]
  - Erythema [Unknown]
  - Rash papular [Unknown]
  - Disease recurrence [Recovered/Resolved]
  - Ligament sprain [Unknown]
  - Gait disturbance [Recovering/Resolving]
  - Limb discomfort [Unknown]
  - Synovitis [Unknown]
  - Joint effusion [Unknown]
  - Joint swelling [Unknown]
  - Suicide attempt [Unknown]
  - Osteoarthritis [Unknown]
  - Dermatitis allergic [Unknown]
  - Urticaria [Unknown]

NARRATIVE: CASE EVENT DATE: 2002
